FAERS Safety Report 5750685-2 (Version None)
Quarter: 2008Q2

REPORT INFORMATION
  Report Type: 
  Country: None (occurrence: None)
  Receive Date: 20080528
  Receipt Date: 20080516
  Transmission Date: 20081010
  Serious: Yes (Other)
  Sender: FDA-Public Use
  Company Number: DE-JNJFOC-20080503182

PATIENT
  Age: 53 Year
  Sex: Female

DRUGS (2)
  1. TAVANIC [Suspect]
     Indication: DRUG USE FOR UNKNOWN INDICATION
     Route: 048
  2. INUVAIR [Concomitant]
     Route: 048

REACTIONS (3)
  - ANXIETY [None]
  - DELUSION [None]
  - FATIGUE [None]
